FAERS Safety Report 21297339 (Version 5)
Quarter: 2022Q4

REPORT INFORMATION
  Report Type: Report from Study
  Country: CH (occurrence: None)
  Receive Date: 20220906
  Receipt Date: 20221102
  Transmission Date: 20230112
  Serious: Yes (Disabling)
  Sender: FDA-Public Use
  Company Number: CH-ROCHE-3172507

PATIENT
  Age: 77 Year
  Sex: Female
  Weight: 62.05 kg

DRUGS (18)
  1. ATEZOLIZUMAB [Suspect]
     Active Substance: ATEZOLIZUMAB
     Indication: Non-small cell lung cancer
     Dosage: START DATE OF MOST RECENT DOSE OF STUDY DRUG PRIOR TO AE AND SAE 02-JUN-2022?DOSE LAST STUDY DRUG AD
     Route: 041
     Dates: start: 20210423
  2. TIRAGOLUMAB [Suspect]
     Active Substance: TIRAGOLUMAB
     Indication: Non-small cell lung cancer
     Dosage: START DATE OF MOST RECENT DOSE OF STUDY DRUG PRIOR TO AE AND SAE 02-JUN-2022?DOSE LAST STUDY DRUG AD
     Route: 042
     Dates: start: 20210423
  3. PEMETREXED [Suspect]
     Active Substance: PEMETREXED
     Indication: Non-small cell lung cancer
     Dosage: START DATE OF MOST RECENT DOSE OF STUDY DRUG PRIOR TO AE AND SAE 25/JUN/2021 AND  25/JUN/2021?DOSE L
     Route: 042
     Dates: start: 20210423
  4. CISPLATIN [Suspect]
     Active Substance: CISPLATIN
     Indication: Non-small cell lung cancer
     Dosage: START DATE OF MOST RECENT DOSE OF STUDY DRUG PRIOR TO AE AND SAE 25/JUN/2021 AND  25/JUN/2021?DOSE L
     Route: 042
     Dates: start: 20210423
  5. PANTOPRAZOLE SODIUM [Concomitant]
     Active Substance: PANTOPRAZOLE SODIUM
     Indication: Prophylaxis
     Dates: start: 20210309
  6. ZINC [Concomitant]
     Active Substance: ZINC
     Indication: Prophylaxis
     Route: 065
  7. ATORVASTATIN CALCIUM\EZETIMIBE [Concomitant]
     Active Substance: ATORVASTATIN CALCIUM\EZETIMIBE
     Indication: Dyslipidaemia
     Dates: start: 20210215
  8. SULGAN N [Concomitant]
     Indication: Haemorrhoids
     Dates: start: 20210830
  9. DAFALGAN [Concomitant]
     Active Substance: ACETAMINOPHEN
     Indication: Arthralgia
     Dosage: AS NEEDED
     Dates: start: 20220726
  10. NOVALGIN (METAMIZOLE SODIUM) [Concomitant]
     Active Substance: METAMIZOLE SODIUM
     Indication: Arthralgia
     Dates: start: 20220726
  11. ASPIRIN [Concomitant]
     Active Substance: ASPIRIN
     Indication: Transient ischaemic attack
     Dates: start: 20210215
  12. SODIUM PICOSULFATE [Concomitant]
     Active Substance: SODIUM PICOSULFATE
     Indication: Constipation
     Dates: start: 20220726
  13. SODIUM PICOSULFATE [Concomitant]
     Active Substance: SODIUM PICOSULFATE
     Dates: start: 20210913, end: 20220714
  14. LISINOPRIL [Concomitant]
     Active Substance: LISINOPRIL
     Indication: Hypertension
     Dates: start: 20210223, end: 20220405
  15. MAGNESIUM [Concomitant]
     Active Substance: MAGNESIUM
     Dates: start: 20210823, end: 20220714
  16. SPASMO URGENIN [Concomitant]
     Indication: Micturition urgency
     Dates: start: 20220228, end: 20220329
  17. D-MANNOSE [Concomitant]
     Dates: start: 20220316, end: 20220405
  18. BUDESONIDE [Concomitant]
     Active Substance: BUDESONIDE
     Indication: COVID-19
     Route: 055
     Dates: start: 20220405, end: 20220420

REACTIONS (1)
  - Arthritis [Not Recovered/Not Resolved]

NARRATIVE: CASE EVENT DATE: 20220425
